FAERS Safety Report 5410321-1 (Version None)
Quarter: 2007Q3

REPORT INFORMATION
  Report Type: 
  Country: None (occurrence: None)
  Receive Date: 20070808
  Receipt Date: 20070727
  Transmission Date: 20080115
  Serious: Yes (Hospitalization)
  Sender: FDA-Public Use
  Company Number: 2007BI016290

PATIENT
  Age: 43 Year
  Sex: Male
  Weight: 99.7913 kg

DRUGS (1)
  1. NATALIZUMAB [Suspect]
     Indication: DRUG USE FOR UNKNOWN INDICATION
     Dosage: 300 MG; QM; IV
     Route: 042
     Dates: start: 20070501

REACTIONS (2)
  - CONVULSION [None]
  - NUCLEAR MAGNETIC RESONANCE IMAGING BRAIN ABNORMAL [None]
